FAERS Safety Report 7635773-8 (Version None)
Quarter: 2011Q3

REPORT INFORMATION
  Report Type: 
  Country: None (occurrence: None)
  Receive Date: 20110726
  Receipt Date: 20110718
  Transmission Date: 20111222
  Serious: Yes (Hospitalization)
  Sender: FDA-Public Use
  Company Number: FR-PFIZER INC-2011166854

PATIENT
  Age: 85 Year
  Sex: Male

DRUGS (9)
  1. DRONEDARONE HCL [Suspect]
     Indication: ATRIAL FIBRILLATION
     Dosage: 400 MG DAILY
     Route: 048
     Dates: start: 20101101, end: 20110401
  2. DRONEDARONE HCL [Suspect]
     Indication: ATRIAL FLUTTER
     Dosage: 1 DOSE FORM DAILY
     Route: 048
     Dates: start: 20100501, end: 20101101
  3. ESOMEPRAZOLE [Concomitant]
     Dosage: UNK
  4. VASTAREL [Concomitant]
     Dosage: UNK
  5. RAMIPRIL [Concomitant]
  6. ALLOPURINOL [Concomitant]
     Dosage: UNK
  7. BISOPROLOL FUMARATE [Concomitant]
  8. ALFUZOSIN HCL [Concomitant]
     Dosage: UNK
  9. LASIX [Concomitant]

REACTIONS (2)
  - TOXIC SKIN ERUPTION [None]
  - PHOTOSENSITIVITY REACTION [None]
